FAERS Safety Report 16479502 (Version 2)
Quarter: 2020Q1

REPORT INFORMATION
  Report Type: Spontaneous
  Country: CA (occurrence: CA)
  Receive Date: 20190626
  Receipt Date: 20200212
  Transmission Date: 20200409
  Serious: Yes (Other)
  Sender: FDA-Public Use
  Company Number: CA-SAMSUNG BIOEPIS-SB-2019-15749

PATIENT
  Age: 26 Year
  Sex: Male

DRUGS (1)
  1. INFLIXIMAB [Suspect]
     Active Substance: INFLIXIMAB
     Indication: CROHN^S DISEASE
     Route: 042

REACTIONS (6)
  - Gonorrhoea [Recovered/Resolved]
  - Product use issue [Recovered/Resolved]
  - Heart rate irregular [Recovered/Resolved]
  - Yellow skin [Recovered/Resolved]
  - Sinusitis [Recovered/Resolved]
  - Arthritis infective [Recovered/Resolved]
